FAERS Safety Report 6129150-9 (Version None)
Quarter: 2009Q1

REPORT INFORMATION
  Report Type: 
  Country: None (occurrence: None)
  Receive Date: 20090323
  Receipt Date: 20090323
  Transmission Date: 20090719
  Serious: Yes (Other)
  Sender: FDA-Public Use
  Company Number: None

PATIENT
  Sex: Female
  Weight: 92.9874 kg

DRUGS (1)
  1. VICODIN [Suspect]
     Indication: PAIN
     Dosage: TOOK ONE W/EACH MEAL
     Dates: start: 20090219, end: 20090224

REACTIONS (7)
  - ARRHYTHMIA [None]
  - DRY SKIN [None]
  - EYE DISCHARGE [None]
  - PRURITUS [None]
  - RASH [None]
  - SKIN EXFOLIATION [None]
  - VISION BLURRED [None]
